FAERS Safety Report 4499035-2 (Version None)
Quarter: 2004Q4

REPORT INFORMATION
  Report Type: 
  Country: None (occurrence: None)
  Receive Date: 20041110
  Receipt Date: 20041110
  Transmission Date: 20050328
  Serious: No
  Sender: FDA-Public Use
  Company Number: None

PATIENT
  Age: 56 Year
  Sex: Male

DRUGS (1)
  1. SARGRAMOSTIM [Suspect]
     Indication: NEUTROPENIA
     Dosage: 475 MCG QD
     Dates: start: 20040609, end: 20040612

REACTIONS (2)
  - CAPILLARY LEAK SYNDROME [None]
  - RHABDOMYOLYSIS [None]
